FAERS Safety Report 23100024 (Version 1)
Quarter: 2023Q4

REPORT INFORMATION
  Report Type: Spontaneous
  Country: US (occurrence: None)
  Receive Date: 20231023
  Receipt Date: 20231023
  Transmission Date: 20240109
  Serious: No
  Sender: FDA-Public Use
  Company Number: None

PATIENT
  Age: 54 Year
  Sex: Male

DRUGS (1)
  1. NOVOLOG [Suspect]
     Active Substance: INSULIN ASPART
     Indication: Type 2 diabetes mellitus
     Dosage: OTHER QUANTITY : 9 INJECTION(S);?FREQUENCY : 3 TIMES A DAY;?
     Route: 058

REACTIONS (3)
  - Victim of crime [None]
  - Product dispensing error [None]
  - Product container seal issue [None]

NARRATIVE: CASE EVENT DATE: 20231011
